FAERS Safety Report 11031995 (Version 1)
Quarter: 2015Q2

REPORT INFORMATION
  Report Type: Spontaneous
  Country: US (occurrence: None)
  Receive Date: 20150414
  Receipt Date: 20150414
  Transmission Date: 20150821
  Serious: Yes (Hospitalization)
  Sender: FDA-Public Use
  Company Number: 2015SUP00035

PATIENT
  Age: 53 Year
  Sex: Female
  Weight: 68 kg

DRUGS (6)
  1. MULTIVITAMIN [Concomitant]
     Active Substance: VITAMINS
  2. TROKENDI XR [Suspect]
     Active Substance: TOPIRAMATE
     Indication: SEIZURE
     Route: 048
     Dates: start: 201410, end: 201501
  3. TROKENDI XR [Suspect]
     Active Substance: TOPIRAMATE
     Indication: EPILEPSY
     Route: 048
     Dates: start: 201410, end: 201501
  4. PREMARIN [Concomitant]
     Active Substance: ESTROGENS, CONJUGATED
  5. CALCIUM [Concomitant]
     Active Substance: CALCIUM
  6. LEVOTHYROXINE [Concomitant]
     Active Substance: LEVOTHYROXINE

REACTIONS (20)
  - Abdominal pain upper [None]
  - Vomiting [None]
  - Feeling drunk [None]
  - Nausea [None]
  - Euphoric mood [None]
  - Feeling abnormal [None]
  - Diplopia [None]
  - Tremor [None]
  - Seizure [None]
  - Dizziness [None]
  - Dry mouth [None]
  - Cognitive disorder [None]
  - Abasia [None]
  - Confusional state [None]
  - Paraesthesia [None]
  - Product substitution issue [None]
  - Product formulation issue [None]
  - Vertigo [None]
  - Hypoaesthesia [None]
  - Hypersensitivity [None]

NARRATIVE: CASE EVENT DATE: 2014
